FAERS Safety Report 5669122-1 (Version None)
Quarter: 2008Q1

REPORT INFORMATION
  Report Type: 
  Country: None (occurrence: None)
  Receive Date: 20080317
  Receipt Date: 20080303
  Transmission Date: 20080703
  Serious: Yes (Hospitalization)
  Sender: FDA-Public Use
  Company Number: US-AMGEN-QUU268237

PATIENT
  Sex: Female

DRUGS (1)
  1. ENBREL [Suspect]
     Indication: PSORIASIS
     Route: 058
     Dates: start: 20070101, end: 20070101

REACTIONS (5)
  - CONVULSION [None]
  - FALL [None]
  - JAW FRACTURE [None]
  - TOOTH INJURY [None]
  - TOOTH LOSS [None]
